FAERS Safety Report 5166147-X (Version None)
Quarter: 2006Q4

REPORT INFORMATION
  Report Type: 
  Country: None (occurrence: None)
  Receive Date: 20061129
  Receipt Date: 20061117
  Transmission Date: 20070319
  Serious: Yes (Other)
  Sender: FDA-Public Use
  Company Number: 2006AP001031

PATIENT
  Age: 44 Year
  Sex: Female

DRUGS (2)
  1. GABAPENTIN [Suspect]
  2. NEFAZODONE HCL [Suspect]

REACTIONS (8)
  - CARDIOTOXICITY [None]
  - CONDUCTION DISORDER [None]
  - DRUG INTERACTION [None]
  - DRUG SCREEN POSITIVE [None]
  - MENTAL STATUS CHANGES [None]
  - MULTIPLE DRUG OVERDOSE INTENTIONAL [None]
  - OVERDOSE [None]
  - SINUS TACHYCARDIA [None]
